FAERS Safety Report 4630131-2 (Version None)
Quarter: 2005Q2

REPORT INFORMATION
  Report Type: 
  Country: None (occurrence: None)
  Receive Date: 20050408
  Receipt Date: 20050326
  Transmission Date: 20051028
  Serious: Yes (Other)
  Sender: FDA-Public Use
  Company Number: JP-GLAXOSMITHKLINE-B0376458A

PATIENT
  Sex: Male

DRUGS (2)
  1. FLOLAN [Suspect]
     Indication: CONGENITAL DIAPHRAGMATIC HERNIA
     Route: 042
  2. NO CONCURRENT MEDICATIONS [Concomitant]

REACTIONS (1)
  - PATENT DUCTUS ARTERIOSUS [None]
